FAERS Safety Report 4461254-9 (Version None)
Quarter: 2004Q3

REPORT INFORMATION
  Report Type: 
  Country: None (occurrence: None)
  Receive Date: 20040928
  Receipt Date: 20040909
  Transmission Date: 20050211
  Serious: Yes (Hospitalization)
  Sender: FDA-Public Use
  Company Number: FR-ABBOTT-04P-056-0273169-00

PATIENT
  Age: 76 Year
  Sex: Male
  Weight: 70 kg

DRUGS (3)
  1. TRANDOLAPRIL [Suspect]
     Indication: DRUG USE FOR UNKNOWN INDICATION
     Route: 048
     Dates: start: 20020101
  2. DEPAKINE CHRONO TABLETS [Suspect]
     Indication: CONVULSION
     Route: 048
     Dates: start: 20021009, end: 20040609
  3. DEPAKINE CHRONO TABLETS [Suspect]
     Dosage: PROGRESSIVE DECREASE
     Route: 048
     Dates: start: 20040610, end: 20040720

REACTIONS (11)
  - ABASIA [None]
  - ABNORMAL BEHAVIOUR [None]
  - BALANCE DISORDER [None]
  - BEDRIDDEN [None]
  - COORDINATION ABNORMAL [None]
  - EPILEPSY [None]
  - FALL [None]
  - PARKINSON'S DISEASE [None]
  - PERSONALITY CHANGE DUE TO A GENERAL MEDICAL CONDITION [None]
  - POSTURE ABNORMAL [None]
  - PSYCHOMOTOR RETARDATION [None]
